FAERS Safety Report 7619499-2 (Version None)
Quarter: 2011Q3

REPORT INFORMATION
  Report Type: 
  Country: None (occurrence: None)
  Receive Date: 20110719
  Receipt Date: 20110708
  Transmission Date: 20111222
  Serious: Yes (Other)
  Sender: FDA-Public Use
  Company Number: NL-AMGEN-NLDSP2011035499

PATIENT
  Age: 56 Year
  Sex: Male
  Weight: 93 kg

DRUGS (5)
  1. METHOTREXATE [Concomitant]
     Indication: ARTHRITIS
     Dosage: 15 MG, WEEKLY
  2. OMEPRAZOLE [Concomitant]
     Dosage: 20 MG, 1X/DAY
  3. FOLIC ACID [Concomitant]
     Indication: ARTHRITIS
     Dosage: 5 MG, WEEKLY
  4. ISRADIPINE [Concomitant]
     Indication: HYPERTENSION
     Dosage: 2.5 MG, 1X/DAY
  5. ENBREL [Suspect]
     Indication: PSORIATIC ARTHROPATHY
     Dosage: 50 MG, WEEKLY
     Route: 058
     Dates: start: 20040511

REACTIONS (1)
  - LENTIGO MALIGNA STAGE UNSPECIFIED [None]
